FAERS Safety Report 8815564 (Version 1)
Quarter: 2012Q4

REPORT INFORMATION
  Report Type: 
  Country: US (occurrence: US)
  Receive Date: 20120928
  Receipt Date: 20120928
  Transmission Date: 20130627
  Serious: No
  Sender: FDA-Public Use
  Company Number: US-009507513-1209USA007826

PATIENT
  Sex: Male

DRUGS (3)
  1. VICTRELIS [Suspect]
     Dosage: 800 mg, tid
     Route: 048
     Dates: start: 201207
  2. RIBASPHERE [Suspect]
  3. PEGASYS [Suspect]

REACTIONS (5)
  - Influenza like illness [Unknown]
  - Nausea [Unknown]
  - Flatulence [Unknown]
  - Dyspnoea [Unknown]
  - Red blood cell count decreased [Unknown]
